FAERS Safety Report 4309676-0 (Version None)
Quarter: 2004Q1

REPORT INFORMATION
  Report Type: 
  Country: None (occurrence: None)
  Receive Date: 20040302
  Receipt Date: 20040220
  Transmission Date: 20041129
  Serious: Yes (Other)
  Sender: FDA-Public Use
  Company Number: US-JNJFOC-20040204906

PATIENT
  Age: 70 Year
  Sex: Female

DRUGS (7)
  1. INFLIXIMAB (INFLIXIMAB, RECOMBINANT) LYOPHILIZED POWDER [Suspect]
     Indication: RHEUMATOID ARTHRITIS
     Dosage: INTRAVENOUS
     Route: 042
     Dates: start: 20010102, end: 20031222
  2. METHOTREXATE [Concomitant]
  3. CELEBREX [Concomitant]
  4. LOTREL (LOTREL) [Concomitant]
  5. LASIX [Concomitant]
  6. TYLENQL (PARACETAMOL) [Concomitant]
  7. PREDNISONE [Concomitant]

REACTIONS (1)
  - SQUAMOUS CELL CARCINOMA OF SKIN [None]
